FAERS Safety Report 14188260 (Version 1)
Quarter: 2017Q4

REPORT INFORMATION
  Report Type: Spontaneous
  Country: US (occurrence: None)
  Receive Date: 20171113
  Receipt Date: 20171113
  Transmission Date: 20180321
  Serious: No
  Sender: FDA-Public Use
  Company Number: None

PATIENT
  Age: 70 Year
  Sex: Male

DRUGS (1)
  1. ZYTIGA [Suspect]
     Active Substance: ABIRATERONE ACETATE
     Indication: PROSTATE CANCER
     Route: 048
     Dates: start: 20170221, end: 20171013

REACTIONS (4)
  - Arthralgia [None]
  - Testicular pain [None]
  - Haemorrhoids [None]
  - Back pain [None]

NARRATIVE: CASE EVENT DATE: 20171113
